FAERS Safety Report 22726325 (Version 4)
Quarter: 2025Q1

REPORT INFORMATION
  Report Type: Report from Study
  Country: KR (occurrence: KR)
  Receive Date: 20230720
  Receipt Date: 20250325
  Transmission Date: 20250408
  Serious: Yes (Other)
  Sender: NOVARTIS
  Company Number: KR-002147023-NVSC2023KR158783

PATIENT
  Age: 61 Year
  Sex: Male

DRUGS (10)
  1. BEOVU [Suspect]
     Active Substance: BROLUCIZUMAB-DBLL
     Indication: Neovascular age-related macular degeneration
     Route: 031
     Dates: start: 20230526, end: 20230526
  2. BEOVU [Suspect]
     Active Substance: BROLUCIZUMAB-DBLL
     Route: 031
     Dates: start: 20230703, end: 20230703
  3. ASPIRIN [Concomitant]
     Active Substance: ASPIRIN
     Indication: Angina pectoris
     Route: 065
     Dates: start: 202201
  4. Olmeron [Concomitant]
     Indication: Hypertension
     Route: 065
     Dates: start: 202201
  5. Glimepigen [Concomitant]
     Indication: Diabetes mellitus
     Route: 065
     Dates: start: 202201
  6. LEVOFLOXACIN [Concomitant]
     Active Substance: LEVOFLOXACIN
     Indication: Evidence based treatment
     Route: 065
     Dates: start: 20230526, end: 20230531
  7. LEVOFLOXACIN [Concomitant]
     Active Substance: LEVOFLOXACIN
     Route: 065
     Dates: start: 20230703, end: 20230708
  8. Hyabak [Concomitant]
     Indication: Prophylaxis
     Route: 065
     Dates: start: 20230609
  9. AVASTIN [Concomitant]
     Active Substance: BEVACIZUMAB
     Indication: Drug ineffective
     Route: 065
     Dates: start: 20240214, end: 20240214
  10. Fumelon [Concomitant]
     Indication: Prophylaxis
     Route: 065
     Dates: start: 20230721

REACTIONS (1)
  - Idiopathic orbital inflammation [Recovering/Resolving]

NARRATIVE: CASE EVENT DATE: 20230706
